FAERS Safety Report 5318870-1 (Version None)
Quarter: 2007Q1

REPORT INFORMATION
  Report Type: 
  Country: None (occurrence: None)
  Receive Date: 20070201
  Receipt Date: 20061226
  Transmission Date: 20070707
  Serious: No
  Sender: FDA-Public Use
  Company Number: VNL_0352_2006

PATIENT
  Age: 71 Year
  Sex: Female

DRUGS (10)
  1. APOKYN [Suspect]
     Indication: PARKINSON'S DISEASE
     Dosage: 0.2 ML ONCE SC
     Route: 058
     Dates: start: 20061212, end: 20061212
  2. APOKYN [Suspect]
     Indication: PARKINSON'S DISEASE
     Dosage: 0.3 ML ONCE SC
     Route: 058
     Dates: start: 20061212, end: 20061212
  3. APOKYN [Suspect]
     Indication: PARKINSON'S DISEASE
     Dosage: 0.4 ML ONCE SC
     Route: 058
     Dates: start: 20061212, end: 20061212
  4. APOKYN [Suspect]
     Indication: PARKINSON'S DISEASE
     Dosage: 0.4 ML QAM SC
     Route: 058
     Dates: start: 20061219, end: 20061221
  5. SINEMET [Concomitant]
  6. MIRAPEX [Concomitant]
  7. COMTAN [Concomitant]
  8. AMANTADINE HCL [Concomitant]
  9. CELEBREX [Concomitant]
  10. UNKNOWN MEDICATION [Concomitant]

REACTIONS (2)
  - DRUG INEFFECTIVE [None]
  - PHARMACEUTICAL PRODUCT COMPLAINT [None]
